FAERS Safety Report 24254728 (Version 4)
Quarter: 2024Q4

REPORT INFORMATION
  Report Type: Report from Study
  Country: CA (occurrence: CA)
  Receive Date: 20240827
  Receipt Date: 20241016
  Transmission Date: 20250115
  Serious: Yes (Hospitalization, Other)
  Sender: ALEXION PHARMACEUTICALS
  Company Number: 2024A192178

PATIENT

DRUGS (5)
  1. TEZSPIRE [Suspect]
     Active Substance: TEZEPELUMAB-EKKO
     Indication: Asthma
     Dosage: 210 MILLIGRAM, UNK
  2. TEZSPIRE [Suspect]
     Active Substance: TEZEPELUMAB-EKKO
  3. VENTOLIN [Concomitant]
     Active Substance: ALBUTEROL SULFATE
     Dosage: 100MCG PRN
  4. PREDNISONE [Concomitant]
     Active Substance: PREDNISONE
     Dosage: 25MG PO DAILY
  5. SYMBICORT [Concomitant]
     Active Substance: BUDESONIDE\FORMOTEROL FUMARATE DIHYDRATE
     Dosage: 200/6MCG 2 PUFFS BID + PRN

REACTIONS (11)
  - Sepsis [Unknown]
  - Oedema [Unknown]
  - Chest discomfort [Unknown]
  - Dyspnoea [Unknown]
  - Wound [Unknown]
  - Cellulitis [Unknown]
  - Fatigue [Unknown]
  - Yawning [Unknown]
  - Asthma [Unknown]
  - Bronchospasm [Unknown]
  - Drug ineffective [Unknown]
